FAERS Safety Report 9547986 (Version 2)
Quarter: 2013Q3

REPORT INFORMATION
  Report Type: Spontaneous
  Country: US (occurrence: US)
  Receive Date: 20130924
  Receipt Date: 20130924
  Transmission Date: 20140515
  Serious: No
  Sender: FDA-Public Use
  Company Number: US-PURDUE-USA-2012-0084375

PATIENT
  Age: 70 Year
  Sex: Female

DRUGS (1)
  1. MS CONTIN TABLETS [Suspect]
     Indication: PAIN
     Dosage: 15 MG, Q4- 6H PRN
     Dates: start: 20111201, end: 20120309

REACTIONS (2)
  - Pain in extremity [Unknown]
  - Local swelling [Recovered/Resolved]
